FAERS Safety Report 4567220-7 (Version None)
Quarter: 2005Q1

REPORT INFORMATION
  Report Type: 
  Country: None (occurrence: None)
  Receive Date: 20050127
  Receipt Date: 20050110
  Transmission Date: 20050727
  Serious: Yes (Other)
  Sender: FDA-Public Use
  Company Number: 2005013356

PATIENT
  Sex: Female
  Weight: 62.5964 kg

DRUGS (3)
  1. LIPITOR [Suspect]
     Indication: BLOOD CHOLESTEROL INCREASED
     Dosage: 10 MG (10 MG 1 IN 1D ) ORAL
     Route: 048
     Dates: end: 20050103
  2. CELEBREX [Suspect]
  3. PARACETAMOL            (PARACETAMOL) [Concomitant]

REACTIONS (6)
  - BLOOD CREATINE PHOSPHOKINASE INCREASED [None]
  - CARDIAC DISORDER [None]
  - CATARACT OPERATION [None]
  - DIARRHOEA [None]
  - HEADACHE [None]
  - PRURITUS [None]
